FAERS Safety Report 13902557 (Version 1)
Quarter: 2017Q3

REPORT INFORMATION
  Report Type: Other
  Country: DE (occurrence: DE)
  Receive Date: 20170824
  Receipt Date: 20170824
  Transmission Date: 20171127
  Serious: Yes (Other)
  Sender: FDA-Public Use
  Company Number: DE-VELOXIS PHARMACEUTICALS-2025028

PATIENT
  Age: 66 Year

DRUGS (6)
  1. MYCOPHENOLIC ACID. [Suspect]
     Active Substance: MYCOPHENOLIC ACID
  2. PREDNISOLONE. [Suspect]
     Active Substance: PREDNISOLONE
  3. PREDNISOLONE. [Suspect]
     Active Substance: PREDNISOLONE
  4. VORICONAZOLE. [Suspect]
     Active Substance: VORICONAZOLE
  5. ENVARSUS XR [Suspect]
     Active Substance: TACROLIMUS
     Indication: RENAL TRANSPLANT
  6. PREDNISOLONE. [Suspect]
     Active Substance: PREDNISOLONE

REACTIONS (6)
  - Drug interaction [Recovered/Resolved]
  - Drug prescribing error [Unknown]
  - Immunosuppressant drug level increased [Recovered/Resolved]
  - Aspergillus infection [Recovered/Resolved]
  - Atypical pneumonia [Recovered/Resolved]
  - Encephalopathy [Recovered/Resolved]
